FAERS Safety Report 6287402-6 (Version None)
Quarter: 2009Q3

REPORT INFORMATION
  Report Type: 
  Country: None (occurrence: None)
  Receive Date: 20090728
  Receipt Date: 20090717
  Transmission Date: 20100115
  Serious: Yes (Congenital Anomaly)
  Sender: FDA-Public Use
  Company Number: DE-GILEAD-2009-0023159

PATIENT
  Sex: Male
  Weight: 1.95 kg

DRUGS (2)
  1. TRUVADA [Suspect]
     Indication: HIV INFECTION
     Route: 064
  2. KALETRA [Concomitant]
     Route: 064

REACTIONS (1)
  - TRACHEAL ATRESIA [None]
